FAERS Safety Report 18435360 (Version 3)
Quarter: 2021Q2

REPORT INFORMATION
  Report Type: Spontaneous
  Country: JP (occurrence: JP)
  Receive Date: 20201027
  Receipt Date: 20210629
  Transmission Date: 20210717
  Serious: Yes (Hospitalization)
  Sender: FDA-Public Use
  Company Number: JP-UCBSA-2020028024

PATIENT
  Age: 22 Year
  Sex: Female
  Weight: 60.4 kg

DRUGS (2)
  1. E KEPPRA [Suspect]
     Active Substance: LEVETIRACETAM
     Dosage: 250 MILLIGRAM, 2X/DAY (BID)
     Route: 048
     Dates: start: 20201030
  2. E KEPPRA [Suspect]
     Active Substance: LEVETIRACETAM
     Indication: EPILEPSY
     Dosage: 250 MILLIGRAM, 2X/DAY (BID)
     Route: 048
     Dates: start: 20200601, end: 20200630

REACTIONS (6)
  - Maternal exposure during pregnancy [Unknown]
  - Ovarian haemorrhage [Recovering/Resolving]
  - Maternal exposure before pregnancy [Unknown]
  - Prescribed underdose [Unknown]
  - Ovarian neoplasm [Recovered/Resolved]
  - Maternal exposure during breast feeding [Unknown]

NARRATIVE: CASE EVENT DATE: 20200601
